FAERS Safety Report 18330699 (Version 1)
Quarter: 2020Q3

REPORT INFORMATION
  Report Type: Spontaneous
  Country: US (occurrence: US)
  Receive Date: 20200930
  Receipt Date: 20200930
  Transmission Date: 20201103
  Serious: No
  Sender: FDA-Public Use
  Company Number: US-ELI_LILLY_AND_COMPANY-US202009005940

PATIENT

DRUGS (1)
  1. EMGALITY [Suspect]
     Active Substance: GALCANEZUMAB-GNLM
     Indication: MIGRAINE
     Dosage: 1 DOSAGE FORM, MONTHLY (1/M)
     Route: 065
     Dates: start: 20200901

REACTIONS (9)
  - Arthralgia [Unknown]
  - Nausea [Unknown]
  - Tremor [Unknown]
  - Myalgia [Unknown]
  - Abdominal pain upper [Unknown]
  - Vertigo [Unknown]
  - Feeling hot [Unknown]
  - Oropharyngeal pain [Unknown]
  - Pruritus [Unknown]
